FAERS Safety Report 13601336 (Version 1)
Quarter: 2017Q2

REPORT INFORMATION
  Report Type: Spontaneous
  Country: US (occurrence: US)
  Receive Date: 20170601
  Receipt Date: 20170601
  Transmission Date: 20170830
  Serious: No
  Sender: FDA-Public Use
  Company Number: None

PATIENT
  Age: 60 Year
  Sex: Female
  Weight: 88.65 kg

DRUGS (5)
  1. CALCIUM WITH VIT D [Concomitant]
  2. DESVENLAFAXINE SUCC ER [Suspect]
     Active Substance: DESVENLAFAXINE SUCCINATE
     Indication: MENOPAUSAL DEPRESSION
     Dosage: ?          QUANTITY:90 TABLET(S);?
     Route: 048
     Dates: start: 20170524
  3. DESVENLAFAXINE SUCC ER [Suspect]
     Active Substance: DESVENLAFAXINE SUCCINATE
     Indication: PERSISTENT DEPRESSIVE DISORDER
     Dosage: ?          QUANTITY:90 TABLET(S);?
     Route: 048
     Dates: start: 20170524
  4. OSTEOBIOFLEX [Concomitant]
  5. ATORVASTATIN [Concomitant]
     Active Substance: ATORVASTATIN

REACTIONS (6)
  - Product substitution issue [None]
  - Withdrawal syndrome [None]
  - Nervousness [None]
  - Drug effect decreased [None]
  - Nausea [None]
  - Irritability [None]

NARRATIVE: CASE EVENT DATE: 20170530
